FAERS Safety Report 7494463-5 (Version None)
Quarter: 2011Q2

REPORT INFORMATION
  Report Type: 
  Country: None (occurrence: None)
  Receive Date: 20110520
  Receipt Date: 20110505
  Transmission Date: 20111010
  Serious: Yes (Hospitalization)
  Sender: FDA-Public Use
  Company Number: DE-ACTELION-A-US2011-48983

PATIENT

DRUGS (4)
  1. VENTAVIS [Suspect]
     Dosage: 20 UG, UNK
     Route: 055
     Dates: start: 20110407
  2. SILDENAFIL CITRATE [Concomitant]
  3. VENTAVIS [Suspect]
     Indication: PRODUCT USED FOR UNKNOWN INDICATION
     Dosage: 10 UG, UNK
     Route: 055
     Dates: start: 20110405
  4. VENTAVIS [Suspect]
     Dosage: 15 UG, UNK
     Route: 055
     Dates: start: 20110406

REACTIONS (4)
  - DYSPHONIA [None]
  - DYSPNOEA [None]
  - PRODUCTIVE COUGH [None]
  - HEADACHE [None]
